FAERS Safety Report 8266052-6 (Version None)
Quarter: 2012Q2

REPORT INFORMATION
  Report Type: 
  Country: None (occurrence: None)
  Receive Date: 20120406
  Receipt Date: 20120330
  Transmission Date: 20120825
  Serious: Yes (Other)
  Sender: FDA-Public Use
  Company Number: US-US-EMD SERONO, INC.-7020438

PATIENT
  Sex: Male
  Weight: 70 kg

DRUGS (7)
  1. ACTOS [Concomitant]
     Indication: DIABETES MELLITUS
     Route: 048
  2. FLOMAX [Concomitant]
     Indication: BENIGN PROSTATIC HYPERPLASIA
  3. METFORMIN HCL [Concomitant]
     Indication: DIABETES MELLITUS
  4. AVODART [Concomitant]
     Indication: BENIGN PROSTATIC HYPERPLASIA
  5. SIMVASTATIN [Concomitant]
     Indication: BLOOD CHOLESTEROL INCREASED
  6. REBIF [Suspect]
     Indication: MULTIPLE SCLEROSIS
     Route: 058
     Dates: start: 20070330
  7. INSULIN [Concomitant]
     Indication: DIABETES MELLITUS

REACTIONS (4)
  - NEPHROLITHIASIS [None]
  - HEADACHE [None]
  - STRESS FRACTURE [None]
  - BLADDER DISORDER [None]
